FAERS Safety Report 5324114-7 (Version None)
Quarter: 2007Q2

REPORT INFORMATION
  Report Type: 
  Country: None (occurrence: None)
  Receive Date: 20070514
  Receipt Date: 20060614
  Transmission Date: 20071010
  Serious: No
  Sender: FDA-Public Use
  Company Number: A0608999A

PATIENT
  Age: 50 Year
  Sex: Female

DRUGS (6)
  1. NABUMETONE [Suspect]
     Indication: OSTEOARTHRITIS
     Dosage: 750MG TWICE PER DAY
     Route: 048
     Dates: start: 20030101
  2. VITAMINS [Concomitant]
  3. LIPITOR [Concomitant]
  4. AVALIDE [Concomitant]
  5. THYROID TAB [Concomitant]
  6. PROTONIX [Concomitant]

REACTIONS (1)
  - DRUG INEFFECTIVE [None]
